FAERS Safety Report 4609628-7 (Version None)
Quarter: 2005Q1

REPORT INFORMATION
  Report Type: 
  Country: None (occurrence: None)
  Receive Date: 20050314
  Receipt Date: 20050228
  Transmission Date: 20050727
  Serious: Yes (Other)
  Sender: FDA-Public Use
  Company Number: 2004114996

PATIENT
  Age: 13 Year
  Sex: Female

DRUGS (4)
  1. ZOLOFT [Suspect]
     Indication: ANXIETY
     Dates: start: 20040101
  2. ZOLOFT [Suspect]
     Indication: DEPRESSION
     Dates: start: 20040101
  3. ZOLOFT [Suspect]
     Indication: HALLUCINATION
     Dates: start: 20040101
  4. NITROUS OXIDE W/ OXYGEN [Suspect]
     Indication: ANXIETY

REACTIONS (7)
  - ABNORMAL BEHAVIOUR [None]
  - DENTAL CARIES [None]
  - DRUG EFFECT INCREASED [None]
  - DRUG EFFECT PROLONGED [None]
  - DRUG INTERACTION [None]
  - FEELING DRUNK [None]
  - SEDATION [None]
